FAERS Safety Report 5406221-3 (Version None)
Quarter: 2007Q3

REPORT INFORMATION
  Report Type: 
  Country: None (occurrence: None)
  Receive Date: 20070806
  Receipt Date: 20070724
  Transmission Date: 20080115
  Serious: Yes (Hospitalization)
  Sender: FDA-Public Use
  Company Number: US-MERCK-0705USA05223

PATIENT
  Age: 60 Year
  Sex: Female
  Weight: 59 kg

DRUGS (14)
  1. VYTORIN [Suspect]
     Indication: HYPERCHOLESTEROLAEMIA
     Route: 048
     Dates: start: 20070405, end: 20070506
  2. VANCOMYCIN [Concomitant]
     Route: 065
  3. NORVASC [Concomitant]
     Route: 065
  4. HYDRALAZINE [Concomitant]
     Route: 065
  5. COREG [Concomitant]
     Route: 065
  6. ARANESP [Concomitant]
     Route: 065
  7. DIALYVITE [Concomitant]
     Route: 065
  8. NEXIUM [Concomitant]
     Route: 065
  9. FERRLECIT [Concomitant]
     Route: 065
  10. PENICILLIN (UNSPECIFIED) [Concomitant]
     Route: 065
  11. LISINOPRIL [Concomitant]
     Route: 065
  12. TYLENOL (CAPLET) [Concomitant]
     Route: 065
  13. COUMADIN [Concomitant]
     Route: 065
  14. ATROVENT [Concomitant]
     Route: 065

REACTIONS (14)
  - CARDIAC ARREST [None]
  - DIABETIC NEPHROPATHY [None]
  - DRUG HYPERSENSITIVITY [None]
  - FALL [None]
  - OBSTRUCTIVE AIRWAYS DISORDER [None]
  - PARAPROTEINAEMIA [None]
  - PULMONARY INFARCTION [None]
  - RENAL FAILURE ACUTE [None]
  - RENAL TUBULAR NECROSIS [None]
  - RESPIRATORY FAILURE [None]
  - RHABDOMYOLYSIS [None]
  - THROMBOCYTOPENIA [None]
  - URINARY TRACT OBSTRUCTION [None]
  - VENOUS THROMBOSIS [None]
